FAERS Safety Report 10236253 (Version 1)
Quarter: 2014Q2

REPORT INFORMATION
  Report Type: Report from Study
  Country: CA (occurrence: CA)
  Receive Date: 20140613
  Receipt Date: 20140613
  Transmission Date: 20141212
  Serious: Yes (Other)
  Sender: FDA-Public Use
  Company Number: CA-JNJFOC-20140608270

PATIENT
  Age: 36 Year
  Sex: Male
  Weight: 117 kg

DRUGS (2)
  1. REMICADE [Suspect]
     Indication: CROHN^S DISEASE
     Route: 042
     Dates: start: 201008
  2. IMURAN [Concomitant]
     Route: 065

REACTIONS (3)
  - Foreign body [Unknown]
  - Fistula discharge [Unknown]
  - Malaise [Unknown]
